FAERS Safety Report 6065230-4 (Version None)
Quarter: 2009Q1

REPORT INFORMATION
  Report Type: 
  Country: None (occurrence: None)
  Receive Date: 20090204
  Receipt Date: 20090127
  Transmission Date: 20090719
  Serious: Yes (Other)
  Sender: FDA-Public Use
  Company Number: PHEH2008US06600

PATIENT
  Sex: Female

DRUGS (2)
  1. ZOMETA [Suspect]
  2. CHEMOTHERAPEUTICS NOS [Suspect]
     Dosage: EVERY THREE WEEKS

REACTIONS (11)
  - ANXIETY [None]
  - BREAST CANCER [None]
  - DECREASED INTEREST [None]
  - HEPATIC NEOPLASM MALIGNANT [None]
  - INJURY [None]
  - MASTECTOMY [None]
  - METASTASES TO LIVER [None]
  - NEOPLASM [None]
  - OSTEONECROSIS [None]
  - PAIN [None]
  - PERIODONTAL DISEASE [None]
